FAERS Safety Report 24987986 (Version 1)
Quarter: 2025Q1

REPORT INFORMATION
  Report Type: Other
  Country: US (occurrence: US)
  Receive Date: 20250219
  Receipt Date: 20250219
  Transmission Date: 20250409
  Serious: Yes (Life-Threatening, Hospitalization, Other)
  Sender: DENTSPLY
  Company Number: US-DENTSPLY-2025SCDP000035

PATIENT
  Age: 20 Year
  Sex: Female

DRUGS (2)
  1. LIDOCAINE [Suspect]
     Active Substance: LIDOCAINE
     Indication: Local anaesthesia
  2. OXYTOCIN [Concomitant]
     Active Substance: OXYTOCIN
     Indication: Product used for unknown indication

REACTIONS (3)
  - Status epilepticus [Recovered/Resolved]
  - Aspiration [Unknown]
  - Local anaesthetic systemic toxicity [Recovered/Resolved]
